FAERS Safety Report 23660797 (Version 1)
Quarter: 2024Q1

REPORT INFORMATION
  Report Type: Other
  Country: US (occurrence: US)
  Receive Date: 20240322
  Receipt Date: 20240322
  Transmission Date: 20240409
  Serious: Yes (Other)
  Sender: FDA-Public Use
  Company Number: US-INTERCEPT-PM2024000536

PATIENT
  Age: 60 Year
  Sex: Female
  Weight: 62.132 kg

DRUGS (15)
  1. OCALIVA [Suspect]
     Active Substance: OBETICHOLIC ACID
     Indication: Primary biliary cholangitis
     Dosage: 5 MILLIGRAM, QD
     Route: 048
     Dates: start: 201810
  2. OCALIVA [Suspect]
     Active Substance: OBETICHOLIC ACID
     Dosage: 5 MILLIGRAM, QD
     Route: 048
  3. CYMBALTA [Concomitant]
     Active Substance: DULOXETINE HYDROCHLORIDE
  4. TRAZODONE HYDROCHLORIDE [Concomitant]
     Active Substance: TRAZODONE HYDROCHLORIDE
  5. CRESTOR [Concomitant]
     Active Substance: ROSUVASTATIN CALCIUM
  6. METFORMIN HYDROCHLORIDE [Concomitant]
     Active Substance: METFORMIN HYDROCHLORIDE
  7. JARDIANCE [Concomitant]
     Active Substance: EMPAGLIFLOZIN
  8. CILOSTAZOL [Concomitant]
     Active Substance: CILOSTAZOL
  9. VITAMIN D3 [Concomitant]
     Active Substance: CHOLECALCIFEROL
  10. BYDUREON BCISE [Concomitant]
     Active Substance: EXENATIDE
  11. METHOTREXATE [Concomitant]
     Active Substance: METHOTREXATE
  12. CARDIZEM [Concomitant]
     Active Substance: DILTIAZEM HYDROCHLORIDE
  13. LOSARTAN POTASSIUM [Concomitant]
     Active Substance: LOSARTAN POTASSIUM
  14. GABAPENTIN [Concomitant]
     Active Substance: GABAPENTIN
  15. COENZYME Q10 [Concomitant]
     Active Substance: DIETARY SUPPLEMENT\UBIDECARENONE

REACTIONS (3)
  - Myocardial infarction [Recovered/Resolved with Sequelae]
  - Chronic kidney disease [Not Recovered/Not Resolved]
  - Stent placement [Recovered/Resolved]

NARRATIVE: CASE EVENT DATE: 20231230
